FAERS Safety Report 19993881 (Version 1)
Quarter: 2021Q4

REPORT INFORMATION
  Report Type: Report from Study
  Country: US (occurrence: US)
  Receive Date: 20211025
  Receipt Date: 20211025
  Transmission Date: 20220304
  Serious: Yes (Other)
  Sender: FDA-Public Use
  Company Number: US-BAUSCH-BL-2021-035118

PATIENT
  Age: 43 Year
  Sex: Male
  Weight: 114.86 kg

DRUGS (6)
  1. SILIQ [Suspect]
     Active Substance: BRODALUMAB
     Indication: Psoriasis
     Dosage: 210MG/1.5ML, LENGTH OF TREATMENT 2 YEARS
     Route: 058
     Dates: start: 201911
  2. SILIQ [Suspect]
     Active Substance: BRODALUMAB
     Dosage: Q 3-4 WEEKS
     Route: 058
  3. ASPIRIN [Concomitant]
     Active Substance: ASPIRIN
     Indication: Product used for unknown indication
     Dosage: DELAYED RELEASE
     Route: 048
  4. ATORVASTATIN [Concomitant]
     Active Substance: ATORVASTATIN
     Indication: Product used for unknown indication
     Route: 048
  5. METOPROLOL SUCCINATE [Concomitant]
     Active Substance: METOPROLOL SUCCINATE
     Indication: Product used for unknown indication
     Dosage: EXTENDED RELEASE TABLET
     Route: 048
  6. WARFARIN [Concomitant]
     Active Substance: WARFARIN
     Indication: Product used for unknown indication
     Route: 048

REACTIONS (3)
  - Myocardial infarction [Unknown]
  - Drug intolerance [Unknown]
  - Arthralgia [Unknown]

NARRATIVE: CASE EVENT DATE: 20200401
